FAERS Safety Report 8212078-8 (Version None)
Quarter: 2012Q1

REPORT INFORMATION
  Report Type: 
  Country: None (occurrence: None)
  Receive Date: 20120315
  Receipt Date: 20120308
  Transmission Date: 20120608
  Serious: Yes (Hospitalization)
  Sender: FDA-Public Use
  Company Number: PHHY2012DE021035

PATIENT
  Age: 32 Year
  Sex: Male

DRUGS (8)
  1. CLOZAPINE [Suspect]
     Dosage: 150 MG EVERY DAY
     Route: 048
     Dates: start: 20120113
  2. ZOLPIDEM [Concomitant]
     Dosage: 10 MG, UNK
     Route: 048
     Dates: start: 20120106
  3. CLOZAPINE [Suspect]
     Dosage: 175 MG DAILY
     Route: 048
     Dates: end: 20120112
  4. PERPHENAZINE [Suspect]
     Dosage: 72 MG EVERY DAY
     Route: 048
     Dates: end: 20120111
  5. PERPHENAZINE [Suspect]
     Dosage: 80 MG EVERY DAY
     Route: 048
     Dates: start: 20120112, end: 20120117
  6. AKINETON [Suspect]
     Dosage: 4 MG EVERY DAY
     Route: 048
  7. LORAZEPAM [Concomitant]
     Dosage: 2 MG, EVERY DAY
     Route: 048
     Dates: start: 20120106
  8. PERPHENAZINE [Suspect]
     Dosage: 88 MG EVERY DAY
     Route: 048
     Dates: start: 20120118

REACTIONS (4)
  - URINARY TRACT INFECTION [None]
  - ENURESIS [None]
  - URINARY HESITATION [None]
  - URINARY INCONTINENCE [None]
